FAERS Safety Report 23575283 (Version 1)
Quarter: 2024Q1

REPORT INFORMATION
  Report Type: Spontaneous
  Country: CH (occurrence: CH)
  Receive Date: 20240228
  Receipt Date: 20240228
  Transmission Date: 20240409
  Serious: Yes (Other)
  Sender: FDA-Public Use
  Company Number: None

PATIENT
  Age: 50 Year
  Sex: Female
  Weight: 72.7 kg

DRUGS (15)
  1. CEFEPIME [Suspect]
     Active Substance: CEFEPIME HYDROCHLORIDE
     Indication: Staphylococcal bacteraemia
     Route: 065
     Dates: start: 20240108, end: 20240109
  2. BISOPROLOL FUMARATE [Suspect]
     Active Substance: BISOPROLOL FUMARATE
     Indication: Product used for unknown indication
     Dosage: 2.5 MG, QD, 2.5 MG N/A DOSE EVERY 1 DAY
     Route: 048
     Dates: start: 20240109
  3. DAFALGAN [Suspect]
     Active Substance: ACETAMINOPHEN
     Indication: Pain
     Dosage: 500 MG, NOT DOCUMENTED ANYMORE AFTER 28.01.2024 ; AS NECESSARY
     Route: 048
     Dates: start: 20240109
  4. ELIQUIS [Suspect]
     Active Substance: APIXABAN
     Indication: Product used for unknown indication
     Dosage: 5 MG, Q12H, 5 MG N/A DOSE EVERY 12 HOUR
     Route: 048
     Dates: start: 20240109, end: 20240129
  5. ENHERTU [Suspect]
     Active Substance: FAM-TRASTUZUMAB DERUXTECAN-NXKI
     Indication: Breast cancer female
     Dosage: UNK
     Route: 065
     Dates: start: 20230920
  6. KEFZOL [Suspect]
     Active Substance: CEFAZOLIN SODIUM
     Indication: Staphylococcal bacteraemia
     Dosage: 2 G, 2 G N/A DOSE EVERY N/A N/A
     Route: 041
     Dates: start: 20240109, end: 20240129
  7. PANTOPRAZOLE SODIUM [Suspect]
     Active Substance: PANTOPRAZOLE SODIUM
     Indication: Product used for unknown indication
     Dosage: 20 MG, QD, 20 MG N/A DOSE EVERY 1 DAY
     Route: 048
     Dates: start: 20240109
  8. NALOXONE HYDROCHLORIDE\OXYCODONE HYDROCHLORIDE [Suspect]
     Active Substance: NALOXONE HYDROCHLORIDE\OXYCODONE HYDROCHLORIDE
     Indication: Product used for unknown indication
     Dosage: UNK, AT 08:00 H AND 20:00 H
     Route: 048
     Dates: start: 20240109
  9. DENTOHEXIN [Concomitant]
     Indication: Product used for unknown indication
     Dosage: UNK, NOT DOCUMENTED ANYMORE AFTER 28.01.2024
     Route: 002
     Dates: start: 20240109
  10. LAXIPEG [Concomitant]
     Indication: Product used for unknown indication
     Dosage: 10 G, QD, 10 G N/A DOSE EVERY 1 DAY
     Route: 048
     Dates: start: 20240109, end: 20240127
  11. LAXIPEG [Concomitant]
     Indication: Product used for unknown indication
     Dosage: 10 G, AS NECESSARY
     Route: 048
     Dates: start: 20240128
  12. MAGNESIUM ASPARTATE HYDROCHLORIDE [Concomitant]
     Active Substance: MAGNESIUM ASPARTATE HYDROCHLORIDE
     Indication: Product used for unknown indication
     Dosage: 5 MMOL, QD, 5 MMOL N/A DOSE EVERY 1 DAY
     Route: 048
     Dates: start: 20240109
  13. PHOSCAP [Concomitant]
     Indication: Product used for unknown indication
     Dosage: 3 MMOL, 3 MMOL N/A DOSE EVERY 8 HOUR
     Route: 048
     Dates: start: 20240109
  14. PREGABALIN [Concomitant]
     Active Substance: PREGABALIN
     Indication: Product used for unknown indication
     Dosage: 75 MG, QD, 75 MG N/A DOSE EVERY 1 DAY
     Route: 048
     Dates: start: 20231009, end: 20240127
  15. ZOLEDRONIC ACID [Concomitant]
     Active Substance: ZOLEDRONIC ACID
     Indication: Product used for unknown indication
     Dosage: UNK, N/A N/A N/A DOSE EVERY 3 MONTH
     Route: 042
     Dates: start: 20220208

REACTIONS (1)
  - Liver disorder [Not Recovered/Not Resolved]

NARRATIVE: CASE EVENT DATE: 20240101
